FAERS Safety Report 17401026 (Version 1)
Quarter: 2020Q1

REPORT INFORMATION
  Report Type: Report from Study
  Country: None (occurrence: US)
  Receive Date: 20200211
  Receipt Date: 20200211
  Transmission Date: 20200409
  Serious: Yes (Hospitalization)
  Sender: FDA-Public Use
  Company Number: US-BIOVITRUM-2019US4351

PATIENT
  Sex: Male

DRUGS (1)
  1. KINERET [Suspect]
     Active Substance: ANAKINRA
     Indication: GOUT
     Route: 058
     Dates: start: 20191113

REACTIONS (5)
  - Gait inability [Unknown]
  - Pain [Unknown]
  - Abdominal discomfort [Unknown]
  - Off label use [Unknown]
  - Diarrhoea [Unknown]
